FAERS Safety Report 9904284 (Version 1)
Quarter: 2014Q1

REPORT INFORMATION
  Report Type: Spontaneous
  Country: JP (occurrence: JP)
  Receive Date: 20140218
  Receipt Date: 20140218
  Transmission Date: 20141002
  Serious: Yes (Hospitalization)
  Sender: FDA-Public Use
  Company Number: JP-ASTRAZENECA-2014SE10614

PATIENT
  Sex: Female

DRUGS (2)
  1. FASLODEX [Suspect]
     Indication: BREAST CANCER
     Route: 030
  2. RANMARK [Suspect]
     Indication: BREAST CANCER
     Dosage: DOSE UNKNOWN
     Route: 058

REACTIONS (3)
  - Platelet count decreased [Unknown]
  - Hypocalcaemia [Unknown]
  - Differential white blood cell count abnormal [Unknown]
